FAERS Safety Report 25188520 (Version 1)
Quarter: 2025Q2

REPORT INFORMATION
  Report Type: Spontaneous
  Country: US (occurrence: US)
  Receive Date: 20250411
  Receipt Date: 20250411
  Transmission Date: 20250717
  Serious: Yes (Other)
  Sender: TRIS PHARM
  Company Number: US-TRIS PHARMA, INC.-25US011908

PATIENT

DRUGS (1)
  1. DYANAVEL XR [Suspect]
     Active Substance: AMPHETAMINE
     Indication: Attention deficit hyperactivity disorder

REACTIONS (5)
  - Epilepsy [Unknown]
  - Crying [Unknown]
  - Lethargy [Unknown]
  - Vomiting [Unknown]
  - Nausea [Unknown]
